FAERS Safety Report 19864760 (Version 1)
Quarter: 2021Q3

REPORT INFORMATION
  Report Type: Spontaneous
  Country: US (occurrence: US)
  Receive Date: 20210922
  Receipt Date: 20210922
  Transmission Date: 20211014
  Serious: No
  Sender: FDA-Public Use
  Company Number: US-BEH-2021136025

PATIENT
  Sex: Female

DRUGS (20)
  1. PRAVACHOL [Concomitant]
     Active Substance: PRAVASTATIN SODIUM
  2. FLUTICASONE. [Concomitant]
     Active Substance: FLUTICASONE
  3. HYDROCHLOROTH [Concomitant]
     Active Substance: HYDROCHLOROTHIAZIDE
  4. HIZENTRA [Suspect]
     Active Substance: HUMAN IMMUNOGLOBULIN G
     Indication: CONGENITAL HYPOGAMMAGLOBULINAEMIA
     Dosage: 30 GRAM, QOW
     Route: 058
  5. LEVOTHYROXIN [Concomitant]
     Active Substance: LEVOTHYROXINE
  6. VITAMIN A [RETINOL] [Concomitant]
     Active Substance: RETINOL
  7. VITAMIN B [Concomitant]
     Active Substance: VITAMIN B
  8. ASPIRIN [ACETYLSALICYLIC ACID] [Concomitant]
     Active Substance: ASPIRIN
  9. PERPHENAZINE. [Concomitant]
     Active Substance: PERPHENAZINE
  10. SPIRONOLACTONE. [Concomitant]
     Active Substance: SPIRONOLACTONE
  11. ALBUTEROL SULFATE. [Concomitant]
     Active Substance: ALBUTEROL SULFATE
     Dosage: UNK MILLIGRAM
  12. CALCIUM CITRATE [Concomitant]
     Active Substance: CALCIUM CITRATE
  13. MYRBETRIQ [Concomitant]
     Active Substance: MIRABEGRON
  14. PANTOPRAZOLE [Concomitant]
     Active Substance: PANTOPRAZOLE
  15. METFORMIN HCL [Concomitant]
     Active Substance: METFORMIN HYDROCHLORIDE
  16. PREGABALIN. [Concomitant]
     Active Substance: PREGABALIN
  17. AZELASTINE HCL [Concomitant]
     Active Substance: AZELASTINE HYDROCHLORIDE
  18. BIOTIN [Concomitant]
     Active Substance: BIOTIN
  19. FLUTICASONE. [Concomitant]
     Active Substance: FLUTICASONE
  20. METOPROLOL. [Concomitant]
     Active Substance: METOPROLOL

REACTIONS (1)
  - Infusion site bruising [Recovered/Resolved]
